FAERS Safety Report 8717579 (Version 2)
Quarter: 2012Q4

REPORT INFORMATION
  Report Type: 
  Country: JP (occurrence: JP)
  Receive Date: 20120810
  Receipt Date: 20121214
  Transmission Date: 20130627
  Serious: Yes (Hospitalization)
  Sender: FDA-Public Use
  Company Number: JP-ELI_LILLY_AND_COMPANY-JP201208000431

PATIENT
  Sex: Female

DRUGS (2)
  1. FORTEO [Suspect]
     Dosage: UNK
     Route: 058
     Dates: end: 20120630
  2. FORTEO [Suspect]
     Dosage: UNK
     Route: 058
     Dates: end: 20120804

REACTIONS (2)
  - Hospitalisation [Recovered/Resolved]
  - Lower limb fracture [Unknown]
